FAERS Safety Report 8711543 (Version 2)
Quarter: 2012Q4

REPORT INFORMATION
  Report Type: 
  Country: FR (occurrence: FR)
  Receive Date: 20120807
  Receipt Date: 20121016
  Transmission Date: 20130627
  Serious: Yes (Hospitalization)
  Sender: FDA-Public Use
  Company Number: FR-GLAXOSMITHKLINE-B0819432A

PATIENT
  Age: 90 None
  Sex: Male

DRUGS (8)
  1. LAMICTAL [Suspect]
     Indication: PRODUCT USED FOR UNKNOWN INDICATION
     Route: 048
     Dates: start: 201012, end: 20120523
  2. ONGLYZA [Suspect]
     Indication: PRODUCT USED FOR UNKNOWN INDICATION
     Dosage: 1UNIT Per day
     Route: 048
     Dates: start: 201109
  3. AVODART [Concomitant]
     Dosage: 1UNIT Per day
     Route: 065
  4. KARDEGIC [Concomitant]
     Dosage: 160MG Per day
     Route: 065
  5. VASTAREL [Concomitant]
     Dosage: 35MG Twice per day
     Route: 065
  6. TAHOR [Concomitant]
     Dosage: 10MG Per day
     Route: 065
  7. IMOVANE [Concomitant]
     Dosage: 7.5MG Per day
     Route: 065
  8. SILODOSIN [Concomitant]
     Dosage: 8MG Per day
     Route: 065

REACTIONS (10)
  - Pemphigoid [Recovering/Resolving]
  - Blister [Recovering/Resolving]
  - Erythema [Recovering/Resolving]
  - Pruritus [Recovering/Resolving]
  - Genital infection fungal [Unknown]
  - Fungal skin infection [Unknown]
  - Actinic keratosis [Recovering/Resolving]
  - Mucosal erosion [Recovering/Resolving]
  - Milia [Recovering/Resolving]
  - Skin erosion [Recovering/Resolving]
